FAERS Safety Report 9336975 (Version 4)
Quarter: 2013Q4

REPORT INFORMATION
  Report Type: Report from Study
  Country: BR (occurrence: BR)
  Receive Date: 20130607
  Receipt Date: 20131209
  Transmission Date: 20140711
  Serious: Yes (Other)
  Sender: FDA-Public Use
  Company Number: PHHY2013BR057536

PATIENT
  Age: 72 Year
  Sex: Female

DRUGS (1)
  1. DIOVAN [Suspect]
     Indication: HYPERTENSION
     Dosage: 1 DF (160MG), DAILY
     Route: 048

REACTIONS (4)
  - Cataract [Recovering/Resolving]
  - Visual impairment [Recovering/Resolving]
  - Procedural complication [Recovering/Resolving]
  - Blood pressure fluctuation [Not Recovered/Not Resolved]
